FAERS Safety Report 8226287-5 (Version None)
Quarter: 2012Q1

REPORT INFORMATION
  Report Type: 
  Country: None (occurrence: None)
  Receive Date: 20120307
  Receipt Date: 20091119
  Transmission Date: 20120608
  Serious: Yes (Other)
  Sender: FDA-Public Use
  Company Number: PHEH2009US12270

PATIENT
  Age: 66 Year
  Sex: Male

DRUGS (9)
  1. PREVACID [Concomitant]
  2. ATROVENT [Concomitant]
  3. ALLOPURINOL [Concomitant]
  4. FLUNISOLIDE (FLUNISOLIDE) [Concomitant]
  5. ALBUTEROL SULFATE [Concomitant]
  6. AFINITOR [Suspect]
     Indication: RENAL CELL CARCINOMA
     Dosage: 10 MG, QD, ORAL 5 MG, QD, ORAL
     Route: 048
     Dates: start: 20090601, end: 20090901
  7. THEOPHYLLINE [Concomitant]
  8. COLCHICINE [Concomitant]
  9. AZMACORT [Concomitant]

REACTIONS (4)
  - COUGH [None]
  - PNEUMONITIS [None]
  - INCREASED BRONCHIAL SECRETION [None]
  - DYSPNOEA [None]
